FAERS Safety Report 23577879 (Version 1)
Quarter: 2024Q1

REPORT INFORMATION
  Report Type: Spontaneous
  Country: US (occurrence: US)
  Receive Date: 20240228
  Receipt Date: 20240228
  Transmission Date: 20240409
  Serious: No
  Sender: FDA-Public Use
  Company Number: US-ABBVIE-5651691

PATIENT
  Sex: Male

DRUGS (2)
  1. LEXAPRO [Suspect]
     Active Substance: ESCITALOPRAM OXALATE
     Indication: Major depression
     Dosage: FORM STRENGTH 20 MILLIGRAM
     Route: 048
  2. LEXAPRO [Suspect]
     Active Substance: ESCITALOPRAM OXALATE
     Indication: Major depression
     Dosage: 40 MILLIGRAM, FORM STRENGTH 20 MILLIGRAM
     Route: 048

REACTIONS (3)
  - Type 2 diabetes mellitus [Unknown]
  - Increased appetite [Unknown]
  - Libido decreased [Unknown]
